FAERS Safety Report 15771311 (Version 3)
Quarter: 2019Q1

REPORT INFORMATION
  Report Type: Spontaneous
  Country: US (occurrence: US)
  Receive Date: 20181228
  Receipt Date: 20190115
  Transmission Date: 20190417
  Serious: Yes (Hospitalization)
  Sender: FDA-Public Use
  Company Number: US-PFIZER INC-2018528259

PATIENT
  Age: 81 Year
  Sex: Female
  Weight: 76.66 kg

DRUGS (1)
  1. LYRICA [Suspect]
     Active Substance: PREGABALIN
     Indication: SPINAL PAIN
     Dosage: 50 MG, 2X/DAY
     Route: 048
     Dates: start: 20180801, end: 201812

REACTIONS (8)
  - Malaise [Unknown]
  - Eating disorder [Unknown]
  - Diarrhoea [Unknown]
  - Withdrawal syndrome [Not Recovered/Not Resolved]
  - Muscle twitching [Unknown]
  - Palpitations [Unknown]
  - Nausea [Unknown]
  - Tremor [Unknown]
